FAERS Safety Report 4680251-1 (Version None)
Quarter: 2005Q2

REPORT INFORMATION
  Report Type: 
  Country: None (occurrence: None)
  Receive Date: 20050525
  Receipt Date: 20050214
  Transmission Date: 20051028
  Serious: No
  Sender: FDA-Public Use
  Company Number: 212452

PATIENT
  Age: 63 Year
  Sex: Female

DRUGS (2)
  1. RAPTIVA [Suspect]
     Indication: PSORIASIS
     Dosage: 87 MG, 1/WEEK, SUBCUTANEOUS
     Route: 058
     Dates: start: 20040630
  2. SORIATANE [Concomitant]

REACTIONS (1)
  - INFECTION [None]
